FAERS Safety Report 15149168 (Version 1)
Quarter: 2018Q3

REPORT INFORMATION
  Report Type: Spontaneous
  Country: US (occurrence: US)
  Receive Date: 20180619
  Receipt Date: 20180619
  Transmission Date: 20181010
  Serious: Yes (Other)
  Sender: FDA-Public Use
  Company Number: None

PATIENT
  Age: 58 Year
  Sex: Female
  Weight: 66.15 kg

DRUGS (9)
  1. KETOTIFEN FUMARATE 0.025% [Concomitant]
     Dates: start: 20170901
  2. VOLTAREN 1 % [Concomitant]
     Dates: start: 20180407
  3. CAPTOPRIL 25 MG [Concomitant]
     Dates: start: 20160429
  4. BASAGLAR KWIKPEN 10 UNITS [Concomitant]
     Dates: start: 20180224
  5. ATORVASTATIN CALCIUM 10 MG [Concomitant]
     Dates: start: 20161214
  6. GLIPIZIDE XL 10 MG [Concomitant]
     Dates: start: 20180407
  7. OMEPRAZOLE 20 MG [Concomitant]
     Active Substance: OMEPRAZOLE
     Dates: start: 20160429
  8. METFORMIN HCL [Suspect]
     Active Substance: METFORMIN HYDROCHLORIDE
     Route: 048
     Dates: start: 20180224, end: 20180509
  9. FLUTICASONE PROPIONATE 50 MCG/ ACT [Concomitant]
     Dates: start: 20170323

REACTIONS (2)
  - Burning sensation [None]
  - Gastrointestinal tract irritation [None]

NARRATIVE: CASE EVENT DATE: 20180509
